FAERS Safety Report 15691208 (Version 3)
Quarter: 2019Q2

REPORT INFORMATION
  Report Type: Spontaneous
  Country: US (occurrence: US)
  Receive Date: 20181205
  Receipt Date: 20190506
  Transmission Date: 20190711
  Serious: No
  Sender: FDA-Public Use
  Company Number: US-SA-2018SA330256

PATIENT
  Age: 43 Year
  Sex: Male

DRUGS (4)
  1. CLARITINE [Concomitant]
     Active Substance: LORATADINE
  2. ALEVE [Concomitant]
     Active Substance: NAPROXEN SODIUM
     Dosage: UNK
  3. DUPIXENT [Suspect]
     Active Substance: DUPILUMAB
     Indication: DERMATITIS ATOPIC
     Dosage: 300 MG, QOW
     Route: 058
     Dates: start: 20180501
  4. ALEVE [Concomitant]
     Active Substance: NAPROXEN SODIUM

REACTIONS (3)
  - Rash [Not Recovered/Not Resolved]
  - Product dose omission [Not Recovered/Not Resolved]
  - Eyelid skin dryness [Not Recovered/Not Resolved]

NARRATIVE: CASE EVENT DATE: 201811
